FAERS Safety Report 4873720-2 (Version None)
Quarter: 2006Q1

REPORT INFORMATION
  Report Type: 
  Country: None (occurrence: None)
  Receive Date: 20060104
  Receipt Date: 20060104
  Transmission Date: 20060701
  Serious: Yes (Life-Threatening)
  Sender: FDA-Public Use
  Company Number: None

PATIENT
  Age: 72 Year
  Sex: Female
  Weight: 89 kg

DRUGS (1)
  1. MORPHINE [Suspect]

REACTIONS (4)
  - ANAPHYLACTIC SHOCK [None]
  - HYPOTENSION [None]
  - RESPIRATORY ARREST [None]
  - SIMILAR REACTION ON PREVIOUS EXPOSURE TO DRUG [None]
